FAERS Safety Report 21442251 (Version 1)
Quarter: 2022Q4

REPORT INFORMATION
  Report Type: Spontaneous
  Country: US (occurrence: US)
  Receive Date: 20221011
  Receipt Date: 20221011
  Transmission Date: 20230113
  Serious: No
  Sender: FDA-Public Use
  Company Number: US-Sprout Pharmaceuticals, Inc.-2021SP000239

PATIENT
  Age: 51 Year
  Sex: Female
  Weight: 61.290 kg

DRUGS (1)
  1. ADDYI [Suspect]
     Active Substance: FLIBANSERIN
     Indication: Libido decreased
     Route: 048
     Dates: start: 20210822, end: 20210825

REACTIONS (5)
  - Headache [Recovered/Resolved]
  - Dyspepsia [Recovered/Resolved]
  - Oropharyngeal discomfort [Recovered/Resolved]
  - Product use in unapproved indication [Recovered/Resolved]
  - Nausea [Recovered/Resolved]

NARRATIVE: CASE EVENT DATE: 20210822
